FAERS Safety Report 9745824 (Version 1)
Quarter: 2013Q4

REPORT INFORMATION
  Report Type: Spontaneous
  Country: US (occurrence: None)
  Receive Date: 20131206
  Receipt Date: 20131206
  Transmission Date: 20140711
  Serious: Yes (Life-Threatening)
  Sender: FDA-Public Use
  Company Number: None

PATIENT
  Age: 55 Year
  Sex: Male
  Weight: 100 kg

DRUGS (12)
  1. PROPOFOL [Suspect]
     Indication: GENERAL ANAESTHESIA
     Route: 042
     Dates: start: 20131127
  2. SEVOFLURANE [Concomitant]
  3. OXYGEN [Concomitant]
  4. SUCCINYLCHOLINE [Concomitant]
  5. VECURONIUM [Concomitant]
  6. FENTANYL [Concomitant]
  7. VERSED [Concomitant]
  8. LIDOCAINE [Concomitant]
  9. DECADRON [Concomitant]
  10. ZOFRAN [Concomitant]
  11. NORMAL SALINE [Concomitant]
  12. CEFAZOLIN [Concomitant]

REACTIONS (10)
  - Ankle fracture [None]
  - Dyspnoea exertional [None]
  - Blood pressure increased [None]
  - Hypotension [None]
  - No reaction on previous exposure to drug [None]
  - No therapeutic response [None]
  - Respiratory rate increased [None]
  - Drug hypersensitivity [None]
  - Anaphylactic shock [None]
  - Respiratory disorder [None]
